FAERS Safety Report 18547191 (Version 1)
Quarter: 2020Q4

REPORT INFORMATION
  Report Type: Spontaneous
  Country: IT (occurrence: IT)
  Receive Date: 20201125
  Receipt Date: 20201125
  Transmission Date: 20210114
  Serious: Yes (Other)
  Sender: FDA-Public Use
  Company Number: NVSC2020IT310439

PATIENT
  Age: 57 Year
  Sex: Male

DRUGS (3)
  1. CARBOPLATIN. [Suspect]
     Active Substance: CARBOPLATIN
     Indication: THYROID NEOPLASM
     Dosage: 400 MG, CYCLIC
     Route: 042
     Dates: start: 20200326
  2. PACLITAXEL. [Suspect]
     Active Substance: PACLITAXEL
     Indication: THYROID NEOPLASM
     Dosage: 180 MG, CYCLIC
     Route: 042
     Dates: start: 20200326
  3. DOXORUBICIN HYDROCHLORIDE. [Suspect]
     Active Substance: DOXORUBICIN HYDROCHLORIDE
     Indication: THYROID NEOPLASM
     Dosage: 110 MG, CYCLIC
     Route: 042
     Dates: start: 20200826

REACTIONS (1)
  - Neutropenia [Recovering/Resolving]

NARRATIVE: CASE EVENT DATE: 20200827
